FAERS Safety Report 8966580 (Version 1)
Quarter: 2012Q4

REPORT INFORMATION
  Report Type: 
  Country: US (occurrence: US)
  Receive Date: 20121217
  Receipt Date: 20121217
  Transmission Date: 20130627
  Serious: No
  Sender: FDA-Public Use
  Company Number: US-PFIZER INC-2012318508

PATIENT
  Age: 64 Year
  Sex: Female

DRUGS (2)
  1. CHANTIX [Suspect]
     Indication: SMOKING CESSATION THERAPY
     Dosage: UNK
     Dates: start: 2011
  2. CHANTIX [Suspect]
     Dosage: UNK
     Dates: start: 2012, end: 2012

REACTIONS (2)
  - Cough decreased [Unknown]
  - Therapeutic response unexpected [Unknown]
